FAERS Safety Report 5017741-8 (Version None)
Quarter: 2006Q2

REPORT INFORMATION
  Report Type: 
  Country: None (occurrence: None)
  Receive Date: 20060605
  Receipt Date: 20060526
  Transmission Date: 20061013
  Serious: Yes (Other)
  Sender: FDA-Public Use
  Company Number: PHEH2006US06966

PATIENT
  Sex: Female

DRUGS (2)
  1. TRILEPTAL [Suspect]
     Indication: CONVULSION
     Dosage: 300 MG, BID
     Route: 048
     Dates: start: 20010101
  2. NEURONTIN [Suspect]
     Indication: CONVULSION
     Dosage: 100 MG, 2 TABLETS QAM + 6 TABLETS QHS
     Route: 048
     Dates: start: 20010101

REACTIONS (2)
  - DRUG HYPERSENSITIVITY [None]
  - LIMB OPERATION [None]
